FAERS Safety Report 9149346 (Version 1)
Quarter: 2013Q1

REPORT INFORMATION
  Report Type: Spontaneous
  Country: DE (occurrence: None)
  Receive Date: 20130131
  Receipt Date: 20130131
  Transmission Date: 20140127
  Serious: Yes (Other)
  Sender: FDA-Public Use
  Company Number: GER/UKI/13/2013

PATIENT
  Sex: Male

DRUGS (4)
  1. SERTRALINE (SERTRALINE) (SERTRALINE) [Suspect]
     Indication: DEPRESSION
     Dosage: 1 IN 1 D
     Route: 048
     Dates: start: 20120926
  2. MIRTAZAPINE (MIRTAZAPINE) [Suspect]
     Indication: DEPRESSION
     Route: 048
     Dates: start: 20121101, end: 20121114
  3. DOMPERIDONE (DOMPERIDONE) [Concomitant]
  4. RAMIPRIL (RAMIPRIL) [Concomitant]

REACTIONS (8)
  - Disturbance in attention [None]
  - Hyperhidrosis [None]
  - Hypertension [None]
  - Malaise [None]
  - Myalgia [None]
  - Serotonin syndrome [None]
  - Tremor [None]
  - Drug interaction [None]
